FAERS Safety Report 12842614 (Version 2)
Quarter: 2016Q4

REPORT INFORMATION
  Report Type: Spontaneous
  Country: AT (occurrence: AT)
  Receive Date: 20161013
  Receipt Date: 20161014
  Transmission Date: 20170207
  Serious: Yes (Other)
  Sender: FDA-Public Use
  Company Number: PHHY2016AT139053

PATIENT
  Age: 70 Year
  Sex: Female

DRUGS (2)
  1. TEGRETOL [Interacting]
     Active Substance: CARBAMAZEPINE
     Indication: PRODUCT USED FOR UNKNOWN INDICATION
     Route: 065
  2. METHOTREXATE. [Suspect]
     Active Substance: METHOTREXATE
     Indication: PRODUCT USED FOR UNKNOWN INDICATION
     Route: 065

REACTIONS (6)
  - Pyrexia [Unknown]
  - Drug interaction [Unknown]
  - Mucous membrane disorder [Unknown]
  - Leukopenia [Unknown]
  - Agranulocytosis [Unknown]
  - Granulocytopenia [Unknown]
